FAERS Safety Report 7648290-6 (Version None)
Quarter: 2011Q3

REPORT INFORMATION
  Report Type: 
  Country: None (occurrence: None)
  Receive Date: 20110801
  Receipt Date: 20110722
  Transmission Date: 20111222
  Serious: Yes (Hospitalization, Other)
  Sender: FDA-Public Use
  Company Number: US-ASTRAZENECA-2011SE44287

PATIENT
  Sex: Female

DRUGS (2)
  1. ARIMIDEX [Suspect]
     Route: 048
  2. NEXIUM [Suspect]
     Route: 048

REACTIONS (6)
  - DIABETES MELLITUS [None]
  - CARDIAC DISORDER [None]
  - ABDOMINAL PAIN UPPER [None]
  - NEOPLASM MALIGNANT [None]
  - PARKINSON'S DISEASE [None]
  - DRUG DOSE OMISSION [None]
